FAERS Safety Report 5707913-9 (Version None)
Quarter: 2008Q2

REPORT INFORMATION
  Report Type: 
  Country: None (occurrence: None)
  Receive Date: 20080417
  Receipt Date: 20080414
  Transmission Date: 20081010
  Serious: Yes (Other)
  Sender: FDA-Public Use
  Company Number: CA-BAYER-200716970NA

PATIENT
  Age: 53 Year
  Sex: Female
  Weight: 66 kg

DRUGS (6)
  1. FLUDARA [Suspect]
     Indication: B-CELL LYMPHOMA
     Dosage: TOTAL DAILY DOSE: 44 MG
     Route: 042
     Dates: start: 20071218, end: 20071220
  2. CYCLOPHOSPHAMIDE [Suspect]
     Indication: B-CELL LYMPHOMA
     Dosage: TOTAL DAILY DOSE: 445 MG
     Route: 042
     Dates: start: 20071218, end: 20071220
  3. DEXAMETHASONE TAB [Concomitant]
     Indication: NAUSEA
     Route: 042
     Dates: start: 20071218
  4. LORAZEPAM [Concomitant]
     Dates: start: 20071218
  5. METOCLOPRAMIDE [Concomitant]
     Indication: NAUSEA
     Dosage: AS USED: 33 MG
     Route: 042
     Dates: start: 20071218
  6. DARBEPOTIN [Concomitant]
     Indication: HAEMOGLOBIN DECREASED

REACTIONS (7)
  - ASTHENIA [None]
  - BODY TEMPERATURE DECREASED [None]
  - CHILLS [None]
  - DIZZINESS [None]
  - FEELING HOT [None]
  - HYPERHIDROSIS [None]
  - HYPOTHERMIA [None]
